FAERS Safety Report 19211732 (Version 2)
Quarter: 2021Q2

REPORT INFORMATION
  Report Type: Spontaneous
  Country: GB (occurrence: GB)
  Receive Date: 20210504
  Receipt Date: 20210519
  Transmission Date: 20210717
  Serious: Yes (Hospitalization, Disabling, Other)
  Sender: FDA-Public Use
  Company Number: GB-PERRIGO-21GB005373

PATIENT

DRUGS (2)
  1. IBUPROFEN. [Suspect]
     Active Substance: IBUPROFEN
     Indication: ILL-DEFINED DISORDER
     Dosage: 200 MG, BID, (2 X 200MG)
     Route: 048
     Dates: start: 20200311, end: 20200311
  2. IBUPROFEN. [Suspect]
     Active Substance: IBUPROFEN
     Indication: ORAL HERPES

REACTIONS (12)
  - Abdominal pain upper [Unknown]
  - Decreased appetite [Unknown]
  - Feeling of body temperature change [Unknown]
  - Constipation [Unknown]
  - Dizziness [Unknown]
  - Off label use [Unknown]
  - Ulcer [Unknown]
  - Vomiting [Unknown]
  - Diarrhoea [Unknown]
  - Faeces discoloured [Unknown]
  - Nausea [Unknown]
  - Chills [Unknown]

NARRATIVE: CASE EVENT DATE: 20200311
